FAERS Safety Report 9509118 (Version 1)
Quarter: 2013Q3

REPORT INFORMATION
  Report Type: Spontaneous
  Country: US (occurrence: US)
  Receive Date: 20130909
  Receipt Date: 20130909
  Transmission Date: 20140515
  Serious: No
  Sender: FDA-Public Use
  Company Number: US-BRISTOL-MYERS SQUIBB COMPANY-19028950

PATIENT
  Age: 27 Year
  Sex: Male
  Weight: 88.89 kg

DRUGS (2)
  1. ABILIFY TABS [Suspect]
     Dosage: DRUG STARTED WITH 30MG DAILY.REDUCED TO 20 MG DAILY.?STOPPED AT JAN 2013.RESTARTED WIT 10MG/DAY
  2. REMERON [Concomitant]

REACTIONS (8)
  - Dyspnoea [Unknown]
  - Blood glucose increased [Unknown]
  - Glycosylated haemoglobin increased [Unknown]
  - Dry mouth [Unknown]
  - Constipation [Unknown]
  - Headache [Unknown]
  - Fatigue [Unknown]
  - Weight decreased [Unknown]
